FAERS Safety Report 19737204 (Version 1)
Quarter: 2021Q3

REPORT INFORMATION
  Report Type: Spontaneous
  Country: CA (occurrence: CA)
  Receive Date: 20210824
  Receipt Date: 20210824
  Transmission Date: 20211014
  Serious: Yes (Hospitalization)
  Sender: FDA-Public Use
  Company Number: CA-CELLTRION INC.-2021CA011468

PATIENT

DRUGS (1)
  1. INFLIXIMAB PFIZER (UNKNOWN) [Suspect]
     Active Substance: INFLIXIMAB
     Indication: COLITIS ULCERATIVE
     Dosage: 450 MG, EVERY 8 WEEKS
     Route: 042

REACTIONS (4)
  - Encephalitis [Recovered/Resolved]
  - Generalised tonic-clonic seizure [Recovered/Resolved]
  - Hemianopia homonymous [Recovered/Resolved]
  - Anti-myelin-associated glycoprotein antibodies positive [Recovered/Resolved]
